FAERS Safety Report 8596525-8 (Version None)
Quarter: 2012Q3

REPORT INFORMATION
  Report Type: 
  Country: None (occurrence: None)
  Receive Date: 20120815
  Receipt Date: 20120807
  Transmission Date: 20120928
  Serious: No
  Sender: FDA-Public Use
  Company Number: US-ASTRAZENECA-2012SE55781

PATIENT
  Age: 24 Year
  Sex: Female

DRUGS (1)
  1. NEXIUM [Suspect]
     Indication: GASTROOESOPHAGEAL REFLUX DISEASE
     Route: 048

REACTIONS (9)
  - DYSKINESIA [None]
  - PHOTOPSIA [None]
  - DYSPNOEA [None]
  - WEIGHT DECREASED [None]
  - INTENTIONAL DRUG MISUSE [None]
  - DEHYDRATION [None]
  - INSOMNIA [None]
  - MYOCLONUS [None]
  - NAUSEA [None]
